FAERS Safety Report 4687390-X (Version None)
Quarter: 2005Q2

REPORT INFORMATION
  Report Type: 
  Country: None (occurrence: None)
  Receive Date: 20050608
  Receipt Date: 20050520
  Transmission Date: 20051028
  Serious: Yes (Hospitalization, Other)
  Sender: FDA-Public Use
  Company Number: ATO-05-0178

PATIENT
  Age: 65 Year
  Sex: Male

DRUGS (3)
  1. TRISENOX [Suspect]
     Indication: MYELODYSPLASTIC SYNDROME
  2. VITAMIN D [Suspect]
  3. FILGRASTIM [Suspect]
     Indication: NEUTROPENIA

REACTIONS (10)
  - ANAEMIA [None]
  - CHILLS [None]
  - DISEASE PROGRESSION [None]
  - DYSPNOEA EXERTIONAL [None]
  - FEBRILE NEUTROPENIA [None]
  - MYELODYSPLASTIC SYNDROME [None]
  - ORAL CANDIDIASIS [None]
  - PAIN IN EXTREMITY [None]
  - PRODUCTIVE COUGH [None]
  - PYREXIA [None]
